FAERS Safety Report 4943923-7 (Version None)
Quarter: 2006Q1

REPORT INFORMATION
  Report Type: 
  Country: None (occurrence: None)
  Receive Date: 20060313
  Receipt Date: 20060313
  Transmission Date: 20060701
  Serious: Yes (Death)
  Sender: FDA-Public Use
  Company Number: None

PATIENT
  Sex: Male

DRUGS (2)
  1. GEMCITABINE [Suspect]
     Indication: COLON CANCER
     Dosage: 1460 MG  IV  (THERAPY DATES: DAY 1)
     Route: 042
  2. OXALIPLATIN [Suspect]
     Indication: COLON CANCER
     Dosage: 146 MG IV  (THERAPY DATES: DAY 2)

REACTIONS (12)
  - ABSCESS LIMB [None]
  - CATHETER RELATED COMPLICATION [None]
  - COMPARTMENT SYNDROME [None]
  - DIARRHOEA [None]
  - ERYTHEMA [None]
  - INFLAMMATION [None]
  - NAUSEA [None]
  - NECROTISING FASCIITIS [None]
  - OEDEMA PERIPHERAL [None]
  - PROCTALGIA [None]
  - UNEVALUABLE EVENT [None]
  - VOMITING [None]
